FAERS Safety Report 6543110-5 (Version None)
Quarter: 2010Q1

REPORT INFORMATION
  Report Type: 
  Country: None (occurrence: None)
  Receive Date: 20100120
  Receipt Date: 20100111
  Transmission Date: 20100710
  Serious: Yes (Hospitalization)
  Sender: FDA-Public Use
  Company Number: PHHO2007GB10999

PATIENT
  Sex: Male
  Weight: 96 kg

DRUGS (2)
  1. CERTICAN [Suspect]
     Indication: HEART TRANSPLANT
     Dosage: 1.5 MG, BID
     Route: 048
     Dates: start: 20070414
  2. NEORAL [Suspect]
     Indication: HEART TRANSPLANT
     Dosage: 175 MG DAILY
     Route: 048
     Dates: start: 20070414

REACTIONS (4)
  - BLOOD CREATININE INCREASED [None]
  - DYSPNOEA [None]
  - RENAL FAILURE ACUTE [None]
  - RENAL IMPAIRMENT [None]
